FAERS Safety Report 16012909 (Version 1)
Quarter: 2019Q1

REPORT INFORMATION
  Report Type: Spontaneous
  Country: US (occurrence: US)
  Receive Date: 20190227
  Receipt Date: 20190227
  Transmission Date: 20190418
  Serious: Yes (Life-Threatening)
  Sender: FDA-Public Use
  Company Number: None

PATIENT
  Age: 40 Year
  Sex: Male
  Weight: 60.75 kg

DRUGS (1)
  1. ANTI-DIARRHEAL [Suspect]
     Active Substance: LOPERAMIDE HYDROCHLORIDE
     Indication: DRUG ABUSE
     Dosage: ?          QUANTITY:96 CAPSULE(S);?
     Route: 048

REACTIONS (1)
  - Overdose [None]

NARRATIVE: CASE EVENT DATE: 20190224
